FAERS Safety Report 5224636-3 (Version None)
Quarter: 2007Q1

REPORT INFORMATION
  Report Type: 
  Country: None (occurrence: None)
  Receive Date: 20070126
  Receipt Date: 20061130
  Transmission Date: 20070707
  Serious: Yes (Death)
  Sender: FDA-Public Use
  Company Number: T200601602

PATIENT
  Age: 40 Year
  Sex: 0

DRUGS (2)
  1. FLUOXETINE [Suspect]
     Dosage: ORAL
     Route: 048
  2. HYDROMROPHONE(HYDROMORPHONE HYDROCHLORIDE) TABLET [Suspect]
     Dosage: PARENTERAL
     Route: 051

REACTIONS (2)
  - CARDIAC ARREST [None]
  - RESPIRATORY ARREST [None]
